FAERS Safety Report 19170482 (Version 1)
Quarter: 2021Q2

REPORT INFORMATION
  Report Type: Report from Study
  Country: None (occurrence: IT)
  Receive Date: 20210423
  Receipt Date: 20210423
  Transmission Date: 20210717
  Serious: Yes (Death)
  Sender: FDA-Public Use
  Company Number: IT-ABBVIE-21K-083-3872152-00

PATIENT
  Age: 84 Year
  Sex: Female

DRUGS (2)
  1. DUODOPA [Suspect]
     Active Substance: CARBIDOPA\LEVODOPA
  2. DUODOPA [Suspect]
     Active Substance: CARBIDOPA\LEVODOPA
     Indication: PARKINSON^S DISEASE
     Dosage: DD: 570 MG, PUMP SETTING: MD: 6+3, CR: 1.5 (13H), ED: 1.5.?STRENGTH: 20 MG/ML 5 MG/ML.
     Route: 050
     Dates: start: 20130724

REACTIONS (1)
  - COVID-19 [Fatal]
